FAERS Safety Report 5566482-7 (Version None)
Quarter: 2007Q4

REPORT INFORMATION
  Report Type: 
  Country: None (occurrence: None)
  Receive Date: 20071219
  Receipt Date: 20071207
  Transmission Date: 20080405
  Serious: Yes (Hospitalization)
  Sender: FDA-Public Use
  Company Number: GB-AVENTIS-200721333GDDC

PATIENT
  Age: 13 Year
  Sex: Female

DRUGS (5)
  1. CEFOTAXIME [Suspect]
     Dosage: DOSE: UNK
  2. METRONIDAZOLE HCL [Suspect]
     Dosage: DOSE: UNK
  3. DICLOFENAC [Suspect]
     Route: 054
  4. HYDROCORTISONE [Suspect]
     Dosage: DOSE: UNK
  5. MESALAMINE [Suspect]
     Dosage: DOSE: UNK

REACTIONS (1)
  - RENAL FAILURE ACUTE [None]
